FAERS Safety Report 6680060-8 (Version None)
Quarter: 2010Q2

REPORT INFORMATION
  Report Type: 
  Country: None (occurrence: None)
  Receive Date: 20100409
  Receipt Date: 20100328
  Transmission Date: 20101027
  Serious: Yes (Hospitalization, Other)
  Sender: FDA-Public Use
  Company Number: A-CH2010-35328

PATIENT
  Age: 48 Year
  Sex: Female

DRUGS (11)
  1. TRACLEER [Suspect]
     Indication: SKIN ULCER
     Dosage: 125 MG, BID, ORAL ; 62.5 MG,BID, ORAL ; 93.7 MG, QD
     Route: 048
     Dates: start: 20090801, end: 20091101
  2. TRACLEER [Suspect]
     Indication: SKIN ULCER
     Dosage: 125 MG, BID, ORAL ; 62.5 MG,BID, ORAL ; 93.7 MG, QD
     Route: 048
     Dates: start: 20100201, end: 20100313
  3. TRACLEER [Suspect]
     Indication: SKIN ULCER
     Dosage: 125 MG, BID, ORAL ; 62.5 MG,BID, ORAL ; 93.7 MG, QD
     Route: 048
     Dates: start: 20100314, end: 20100321
  4. PREDNISONE TAB [Concomitant]
  5. AMIKACIN SULFATE [Concomitant]
  6. OMEPRAZOLE [Concomitant]
  7. WARFARIN SODIUM [Concomitant]
  8. TRAMADOL HCL [Concomitant]
  9. CALCIUM (CALCIUM) [Concomitant]
  10. AUGMENTIN '125' [Concomitant]
  11. DILTIAZEM [Concomitant]

REACTIONS (7)
  - ALANINE AMINOTRANSFERASE INCREASED [None]
  - ASPARTATE AMINOTRANSFERASE INCREASED [None]
  - BLOOD ALKALINE PHOSPHATASE INCREASED [None]
  - DISEASE PROGRESSION [None]
  - GAMMA-GLUTAMYLTRANSFERASE INCREASED [None]
  - LIVER FUNCTION TEST ABNORMAL [None]
  - SKIN ULCER [None]
